FAERS Safety Report 24613467 (Version 1)
Quarter: 2024Q4

REPORT INFORMATION
  Report Type: Spontaneous
  Country: US (occurrence: US)
  Receive Date: 20241113
  Receipt Date: 20241113
  Transmission Date: 20250114
  Serious: Yes (Other)
  Sender: ELI LILLY AND COMPANY
  Company Number: US-ELI_LILLY_AND_COMPANY-US202411003251

PATIENT
  Age: 76 Year
  Sex: Female

DRUGS (3)
  1. RETEVMO [Suspect]
     Active Substance: SELPERCATINIB
     Indication: Medullary thyroid cancer
     Dosage: 160 MG, DAILY
     Route: 065
     Dates: start: 202307, end: 202405
  2. RETEVMO [Suspect]
     Active Substance: SELPERCATINIB
     Dosage: 120 MG, DAILY
     Route: 065
  3. RETEVMO [Suspect]
     Active Substance: SELPERCATINIB
     Dosage: 80 MG, BID (TWO 40MG CAPSULES AM AND TWO CAPSULES PM)
     Route: 065
     Dates: start: 20241030

REACTIONS (9)
  - Malignant neoplasm progression [Unknown]
  - Abdominal distension [Unknown]
  - Neuropathy peripheral [Unknown]
  - Pruritus [Unknown]
  - Feeding disorder [Unknown]
  - Rash [Recovered/Resolved]
  - Peripheral swelling [Unknown]
  - Diarrhoea [Unknown]
  - Rash [Unknown]

NARRATIVE: CASE EVENT DATE: 20230101
